FAERS Safety Report 25065367 (Version 2)
Quarter: 2025Q3

REPORT INFORMATION
  Report Type: Report from Study
  Country: EU (occurrence: EU)
  Receive Date: 20250311
  Receipt Date: 20250810
  Transmission Date: 20251021
  Serious: Yes (Death, Life-Threatening, Other)
  Sender: ALEXION PHARMACEUTICALS
  Company Number: EU-ASTRAZENECA-202406GLO002122FR

PATIENT
  Age: 75 Year
  Sex: Female
  Weight: 50 kg

DRUGS (1)
  1. TICAGRELOR [Suspect]
     Active Substance: TICAGRELOR
     Indication: Cerebrovascular accident prophylaxis

REACTIONS (4)
  - Haemorrhagic stroke [Fatal]
  - Cerebral haematoma [Fatal]
  - Intraventricular haemorrhage [Fatal]
  - Posthaemorrhagic hydrocephalus [Fatal]

NARRATIVE: CASE EVENT DATE: 20240621
